FAERS Safety Report 17528244 (Version 1)
Quarter: 2020Q1

REPORT INFORMATION
  Report Type: Spontaneous
  Country: IT (occurrence: IT)
  Receive Date: 20200311
  Receipt Date: 20200311
  Transmission Date: 20200409
  Serious: Yes (Other)
  Sender: FDA-Public Use
  Company Number: NVSC2020IT058908

PATIENT
  Age: 65 Year
  Sex: Female

DRUGS (1)
  1. LUTETIUM (177LU) OXODOTREOTIDE [Suspect]
     Active Substance: LUTETIUM OXODOTREOTIDE LU-177
     Indication: PARAGANGLION NEOPLASM
     Dosage: 3 CYCLES
     Route: 065

REACTIONS (3)
  - Autoimmune hepatitis [Unknown]
  - Therapy partial responder [Unknown]
  - Product use in unapproved indication [Unknown]
